FAERS Safety Report 12657698 (Version 1)
Quarter: 2016Q3

REPORT INFORMATION
  Report Type: Spontaneous
  Country: US (occurrence: US)
  Receive Date: 20160816
  Receipt Date: 20160816
  Transmission Date: 20161109
  Serious: Yes (Hospitalization, Other)
  Sender: FDA-Public Use
  Company Number: US-BEH-2016072469

PATIENT
  Age: 11 Year
  Sex: Female

DRUGS (2)
  1. PREDNISONE. [Concomitant]
     Active Substance: PREDNISONE
  2. PRIVIGEN [Suspect]
     Active Substance: HUMAN IMMUNOGLOBULIN G
     Indication: PRODUCT USED FOR UNKNOWN INDICATION
     Dosage: UNK UNK, QOW
     Route: 065
     Dates: start: 201412

REACTIONS (5)
  - Infection [Unknown]
  - Headache [Unknown]
  - White blood cell count increased [Unknown]
  - Meningitis aseptic [Unknown]
  - Tonsillectomy [Unknown]

NARRATIVE: CASE EVENT DATE: 201501
